FAERS Safety Report 19624951 (Version 1)
Quarter: 2021Q3

REPORT INFORMATION
  Report Type: Spontaneous
  Country: IN (occurrence: IN)
  Receive Date: 20210729
  Receipt Date: 20210729
  Transmission Date: 20211014
  Serious: Yes (Other)
  Sender: FDA-Public Use
  Company Number: IN-SHILPA MEDICARE LIMITED-SML-IN-2021-00919

PATIENT
  Age: 41 Year
  Sex: Male

DRUGS (5)
  1. GEMCITABINE, UNKNOWN [Suspect]
     Active Substance: GEMCITABINE
     Indication: LUNG CANCER METASTATIC
     Route: 065
  2. PEMETREXED, UNKNOWN [Suspect]
     Active Substance: PEMETREXED
     Indication: LUNG CANCER METASTATIC
     Route: 065
     Dates: end: 202002
  3. BEVACIZUMAB. [Suspect]
     Active Substance: BEVACIZUMAB
     Indication: LUNG CANCER METASTATIC
     Route: 065
  4. ATEZOLIZUMAB. [Suspect]
     Active Substance: ATEZOLIZUMAB
     Indication: LUNG CANCER METASTATIC
     Route: 065
  5. PEMBROLIZUMAB. [Suspect]
     Active Substance: PEMBROLIZUMAB
     Indication: LUNG CANCER METASTATIC
     Route: 065
     Dates: end: 202002

REACTIONS (2)
  - Neutropenia [Unknown]
  - Disease progression [Unknown]
